FAERS Safety Report 4952977-3 (Version None)
Quarter: 2006Q1

REPORT INFORMATION
  Report Type: 
  Country: None (occurrence: None)
  Receive Date: 20060324
  Receipt Date: 20060320
  Transmission Date: 20060701
  Serious: Yes (Other)
  Sender: FDA-Public Use
  Company Number: JP-GILEAD-2006-0009337

PATIENT
  Sex: Male

DRUGS (5)
  1. HEPSERA [Suspect]
     Indication: HEPATIC CIRRHOSIS
     Route: 048
     Dates: start: 20020301
  2. LANSOPRAZOLE [Concomitant]
  3. PROGRAF [Concomitant]
  4. MUCOSTA [Concomitant]
  5. LOXONIN [Concomitant]

REACTIONS (1)
  - MUSCLE ATROPHY [None]
